FAERS Safety Report 5266262-6 (Version None)
Quarter: 2007Q1

REPORT INFORMATION
  Report Type: 
  Country: None (occurrence: None)
  Receive Date: 20070315
  Receipt Date: 20070309
  Transmission Date: 20070707
  Serious: Yes (Other)
  Sender: FDA-Public Use
  Company Number: JP-MERCK-0703USA02274

PATIENT
  Sex: Female

DRUGS (2)
  1. PEPCID [Suspect]
     Route: 048
  2. ALLOPURINOL [Concomitant]
     Route: 065

REACTIONS (1)
  - EOSINOPHILIC PNEUMONIA [None]
